FAERS Safety Report 19474811 (Version 1)
Quarter: 2021Q2

REPORT INFORMATION
  Report Type: Spontaneous
  Country: US (occurrence: US)
  Receive Date: 20210630
  Receipt Date: 20210630
  Transmission Date: 20210717
  Serious: Yes (Hospitalization)
  Sender: FDA-Public Use
  Company Number: US-SA-2021SA213872

PATIENT
  Sex: Male

DRUGS (14)
  1. CERDELGA [Suspect]
     Active Substance: ELIGLUSTAT
     Indication: NECK INJURY
     Dosage: 84 MG, BID
     Route: 048
     Dates: start: 20200901
  2. VITAMIN D3 CALCIUM [Concomitant]
     Active Substance: CALCIUM\CHOLECALCIFEROL
  3. GABAPENTIN. [Concomitant]
     Active Substance: GABAPENTIN
  4. ALBUTEROL [SALBUTAMOL] [Concomitant]
     Active Substance: ALBUTEROL
  5. SYMBICORT [Concomitant]
     Active Substance: BUDESONIDE\FORMOTEROL FUMARATE DIHYDRATE
  6. NEXIUM I.V. [Concomitant]
     Active Substance: ESOMEPRAZOLE SODIUM
  7. CIALIS [Concomitant]
     Active Substance: TADALAFIL
  8. CERDELGA [Suspect]
     Active Substance: ELIGLUSTAT
     Indication: LIPIDOSIS
  9. ELIQUIS [Concomitant]
     Active Substance: APIXABAN
  10. LISINOPRIL. [Concomitant]
     Active Substance: LISINOPRIL
  11. FLECTOR [DICLOFENAC SODIUM] [Concomitant]
     Active Substance: DICLOFENAC SODIUM
  12. FOLIC ACID. [Concomitant]
     Active Substance: FOLIC ACID
  13. TRAZODONE [Concomitant]
     Active Substance: TRAZODONE HYDROCHLORIDE
  14. FISH OIL [Concomitant]
     Active Substance: FISH OIL

REACTIONS (3)
  - Limb injury [Unknown]
  - Product use in unapproved indication [Unknown]
  - Localised infection [Unknown]
